FAERS Safety Report 8388301-6 (Version None)
Quarter: 2012Q2

REPORT INFORMATION
  Report Type: 
  Country: None (occurrence: None)
  Receive Date: 20120525
  Receipt Date: 20120521
  Transmission Date: 20120825
  Serious: No
  Sender: FDA-Public Use
  Company Number: US-PFIZER INC-2012097156

PATIENT

DRUGS (6)
  1. CELEXA [Concomitant]
     Dosage: UNK
  2. METFORMIN [Concomitant]
     Dosage: UNK
  3. MELOXICAM [Concomitant]
     Dosage: UNK
  4. TRAMADOL [Concomitant]
     Dosage: UNK
  5. BACLOFEN [Concomitant]
     Dosage: UNK
  6. GLUCOTROL [Suspect]
     Dosage: 5 MG 2 TAB ONCE A DAY

REACTIONS (3)
  - DEPRESSION [None]
  - IMPAIRED WORK ABILITY [None]
  - BACK PAIN [None]
